FAERS Safety Report 4569591-4 (Version None)
Quarter: 2005Q1

REPORT INFORMATION
  Report Type: 
  Country: None (occurrence: None)
  Receive Date: 20050201
  Receipt Date: 20050124
  Transmission Date: 20050727
  Serious: Yes (Hospitalization)
  Sender: FDA-Public Use
  Company Number: 200510173GDS

PATIENT
  Age: 74 Year
  Sex: Female

DRUGS (4)
  1. ASPIRIN [Suspect]
     Indication: ACUTE CORONARY SYNDROME
     Dosage: 100 MG, QD, ORAL
     Route: 048
     Dates: start: 20050103, end: 20050118
  2. PLAVIX [Suspect]
     Indication: ACUTE CORONARY SYNDROME
     Dosage: 75 MG, QD, ORAL
     Route: 048
     Dates: start: 20050103, end: 20050118
  3. TRIATEC [Concomitant]
  4. LOPRESSOR [Concomitant]

REACTIONS (1)
  - THROMBOCYTOPENIA [None]
